APPROVED DRUG PRODUCT: TOPIRAMATE
Active Ingredient: TOPIRAMATE
Strength: 25MG
Dosage Form/Route: TABLET;ORAL
Application: A078410 | Product #001
Applicant: CHARTWELL LIFE MOLECULES LLC
Approved: Sep 11, 2013 | RLD: No | RS: No | Type: DISCN